FAERS Safety Report 21465796 (Version 1)
Quarter: 2022Q4

REPORT INFORMATION
  Report Type: Report from Study
  Country: US (occurrence: US)
  Receive Date: 20221017
  Receipt Date: 20221017
  Transmission Date: 20230113
  Serious: No
  Sender: FDA-Public Use
  Company Number: US-ABBVIE-4162925

PATIENT
  Sex: Male

DRUGS (4)
  1. HUMIRA [Suspect]
     Active Substance: ADALIMUMAB
     Indication: Rheumatoid arthritis
     Route: 058
  2. Moderna [Concomitant]
     Indication: COVID-19 immunisation
     Dosage: ONE IN ONCE, FIRST DOSE
     Route: 030
  3. Moderna [Concomitant]
     Indication: COVID-19 immunisation
     Dosage: ONE IN ONCE, SECOND DOSE
     Route: 030
  4. Moderna [Concomitant]
     Indication: COVID-19 immunisation
     Dosage: ONE IN ONCE, BOOSTER DOSE
     Route: 030

REACTIONS (3)
  - Therapeutic product effect decreased [Unknown]
  - Joint stiffness [Unknown]
  - Pain in extremity [Unknown]
